FAERS Safety Report 20697726 (Version 5)
Quarter: 2022Q3

REPORT INFORMATION
  Report Type: Spontaneous
  Country: US (occurrence: US)
  Receive Date: 20220411
  Receipt Date: 20220720
  Transmission Date: 20221027
  Serious: Yes (Other)
  Sender: FDA-Public Use
  Company Number: US-COOPERSURGICAL, INC.-US-2021CPS003681

PATIENT
  Age: 33 Year
  Sex: Female

DRUGS (1)
  1. PARAGARD T 380A [Suspect]
     Active Substance: COPPER
     Indication: Contraception
     Dosage: UNK
     Route: 015
     Dates: start: 20170314

REACTIONS (12)
  - Injury associated with device [Unknown]
  - Device issue [Recovered/Resolved]
  - Vulvovaginal mycotic infection [Recovered/Resolved]
  - Deformity [Unknown]
  - Device breakage [Not Recovered/Not Resolved]
  - Foreign body in reproductive tract [Not Recovered/Not Resolved]
  - Complication of device removal [Not Recovered/Not Resolved]
  - Pain [Unknown]
  - Device expulsion [Not Recovered/Not Resolved]
  - Unintentional medical device removal [Unknown]
  - Reproductive complication associated with device [Unknown]
  - Anxiety [Unknown]

NARRATIVE: CASE EVENT DATE: 20180813
